FAERS Safety Report 23645900 (Version 1)
Quarter: 2024Q1

REPORT INFORMATION
  Report Type: Spontaneous
  Country: US (occurrence: None)
  Receive Date: 20240319
  Receipt Date: 20240319
  Transmission Date: 20240410
  Serious: No
  Sender: FDA-Public Use
  Company Number: 2024A065214

PATIENT
  Sex: Male
  Weight: 114.3 kg

DRUGS (1)
  1. TEZSPIRE [Suspect]
     Active Substance: TEZEPELUMAB-EKKO
     Indication: Asthma
     Dates: start: 202401

REACTIONS (5)
  - Chest discomfort [Unknown]
  - Ill-defined disorder [Unknown]
  - Cough [Unknown]
  - Illness [Unknown]
  - Productive cough [Unknown]
